FAERS Safety Report 4293199-1 (Version None)
Quarter: 2004Q1

REPORT INFORMATION
  Report Type: 
  Country: None (occurrence: None)
  Receive Date: 20040210
  Receipt Date: 20040129
  Transmission Date: 20041129
  Serious: Yes (Hospitalization)
  Sender: FDA-Public Use
  Company Number: 2004006201

PATIENT
  Age: 73 Year
  Sex: Female
  Weight: 63.9572 kg

DRUGS (16)
  1. TIKOSYN [Suspect]
     Indication: ATRIAL FIBRILLATION
     Dosage: 500 MCG (BID), ORAL
     Route: 048
     Dates: start: 20031118
  2. ACE INHIBITOR NOS [Suspect]
     Indication: CARDIAC FAILURE
  3. WARFARIN SODIUM [Concomitant]
  4. ACETYLSALICYLIC ACID SRT [Concomitant]
  5. DESLORATADINE (DESLORATADINE) [Concomitant]
  6. CARVEDILOL [Concomitant]
  7. PROPACET 100 [Concomitant]
  8. FISHI OIL (FISH OIL) [Concomitant]
  9. POTASSIUM CHLORIDE [Concomitant]
  10. LEVOTHYROXINE SODIUM [Concomitant]
  11. LORAZEPAM [Concomitant]
  12. CYANOCOBALAMIN (CYANOCOBALAMIN) [Concomitant]
  13. PYRIDOXINE HYDROCHLORIDE (PYRIDOXIINE HYDROCHLORIDE) [Concomitant]
  14. ASCORBIC ACID [Concomitant]
  15. TOCOPHEROL CONCENTRATE CAP [Concomitant]
  16. TORSEMIDE [Concomitant]

REACTIONS (4)
  - BLOOD ELECTROLYTES ABNORMAL [None]
  - COUGH [None]
  - DEHYDRATION [None]
  - INCISIONAL HERNIA [None]
